FAERS Safety Report 8611426-4 (Version None)
Quarter: 2012Q3

REPORT INFORMATION
  Report Type: 
  Country: None (occurrence: None)
  Receive Date: 20120805
  Receipt Date: 20120719
  Transmission Date: 20120928
  Serious: Yes (Disabling, Other)
  Sender: FDA-Public Use
  Company Number: 2012032936

PATIENT
  Sex: Female
  Weight: 81.6475 kg

DRUGS (17)
  1. IPRATROPIUM BROMIDE [Concomitant]
  2. ALLEGRA [Concomitant]
  3. PREDNISONE TAB [Concomitant]
  4. HYDROCORTONE [Concomitant]
  5. VIVELLE [Concomitant]
  6. THYROID TAB [Concomitant]
  7. PREVACID [Concomitant]
  8. PROVENTIL [Concomitant]
  9. FUROSEMIDE [Concomitant]
  10. PROGESTERONE [Concomitant]
  11. VERAMYST (FLUTICASONE) [Concomitant]
  12. SINGULAIR [Concomitant]
  13. ALBUTEROL [Concomitant]
  14. LUNESTA [Concomitant]
  15. MECLIZINE [Concomitant]
  16. HIZENTRA [Suspect]
     Indication: IMMUNODEFICIENCY COMMON VARIABLE
     Dosage: (8 G, ??-SEP-2011 SUBCUTANEOUS), (SUBCUTANEOUS), (3 G 2X/WEEK SUBCUTANEOUS)
     Route: 058
  17. PATADAY (OLOPATADINE) [Concomitant]

REACTIONS (12)
  - PYREXIA [None]
  - CHILLS [None]
  - MALAISE [None]
  - FATIGUE [None]
  - ERYTHEMA [None]
  - PRURITUS [None]
  - OEDEMA [None]
  - FLANK PAIN [None]
  - NAUSEA [None]
  - SWELLING [None]
  - BACK PAIN [None]
  - MYALGIA [None]
